FAERS Safety Report 5894711-9 (Version None)
Quarter: 2008Q3

REPORT INFORMATION
  Report Type: 
  Country: None (occurrence: None)
  Receive Date: 20080924
  Receipt Date: 20080516
  Transmission Date: 20090109
  Serious: No
  Sender: FDA-Public Use
  Company Number: US-ASTRAZENECA-2008UW10221

PATIENT
  Age: 42 Year
  Sex: Female
  Weight: 74.8 kg

DRUGS (2)
  1. SEROQUEL [Suspect]
     Indication: BIPOLAR DISORDER
     Route: 048
     Dates: start: 20070501
  2. LAMICTAL [Concomitant]

REACTIONS (3)
  - DRY MOUTH [None]
  - NASAL CONGESTION [None]
  - QUALITY OF LIFE DECREASED [None]
